FAERS Safety Report 10947599 (Version 1)
Quarter: 2015Q1

REPORT INFORMATION
  Report Type: Other
  Country: GB (occurrence: GB)
  Receive Date: 20150323
  Receipt Date: 20150323
  Transmission Date: 20150721
  Serious: Yes (Other)
  Sender: FDA-Public Use
  Company Number: GB-MYLANLABS-2015M1007769

PATIENT

DRUGS (14)
  1. CHLORHEXIDINE GLUCONATE. [Concomitant]
     Active Substance: CHLORHEXIDINE GLUCONATE
     Dosage: USE AS DIRECTED
     Dates: start: 20140924
  2. COAL TAR. [Concomitant]
     Active Substance: COAL TAR
     Dosage: USE AS NEEDED
     Dates: start: 20140924
  3. CALCIPOTRIOL [Concomitant]
     Active Substance: CALCIPOTRIENE
     Dosage: APPLY ONCE DAILY TO AFFECTED AREAS-NOT TO FACE
     Dates: start: 20131105
  4. METHOCARBAMOL. [Concomitant]
     Active Substance: METHOCARBAMOL
     Indication: SCIATICA
     Dosage: 2 DF, UNK
     Dates: start: 20141208
  5. PARACETAMOL [Concomitant]
     Active Substance: ACETAMINOPHEN
     Indication: PAIN
     Dosage: UNK, QID; TAKE 1 OR 2
     Dates: start: 20141208
  6. AVEENO [Concomitant]
     Active Substance: DIMETHICONE\HOMOSALATE\OCTINOXATE\OCTISALATE\TITANIUM DIOXIDE
     Indication: PSORIASIS
     Dosage: MASSGE INTO PSORIATIC PLAQUES WHEN WASHING
     Dates: start: 20140416
  7. BETAMETHASONE VALERATE. [Concomitant]
     Active Substance: BETAMETHASONE VALERATE
     Dates: start: 20141203, end: 20141210
  8. SOYA OIL [Concomitant]
     Active Substance: SOYBEAN OIL
     Indication: PSORIASIS
     Dosage: USE FOR BATH TREATMENT OF PSORIASIS
     Dates: start: 20140910
  9. COCODAMOL [Concomitant]
     Active Substance: ACETAMINOPHEN\CODEINE PHOSPHATE
     Dosage: TAKE 1 OR 2
     Dates: start: 20141224, end: 20150121
  10. NAPROXEN. [Concomitant]
     Active Substance: NAPROXEN
     Dosage: WITH FOOD AND PROTON PUMP INHIBITOR.
     Dates: start: 20141203, end: 20150121
  11. LANSOPRAZOLE. [Concomitant]
     Active Substance: LANSOPRAZOLE
     Dosage: 1 DF, QD
     Dates: start: 20141203, end: 20150129
  12. METHOTREXATE [Suspect]
     Active Substance: METHOTREXATE
     Dosage: 4 DF, QW; TO BE TAKEN FOR TWO WEEKS
     Dates: start: 20150107
  13. LYMECYCLINE [Concomitant]
     Active Substance: LYMECYCLINE
     Dosage: 1 DF, QD
     Dates: start: 20140305, end: 20141203
  14. NEFOPAM [Concomitant]
     Active Substance: NEFOPAM
     Dosage: 2 DF, TID
     Dates: start: 20141203, end: 20141208

REACTIONS (1)
  - Serum procollagen type III N-terminal propeptide increased [Unknown]

NARRATIVE: CASE EVENT DATE: 20150227
